FAERS Safety Report 7517992-4 (Version None)
Quarter: 2011Q2

REPORT INFORMATION
  Report Type: 
  Country: None (occurrence: None)
  Receive Date: 20110602
  Receipt Date: 20110518
  Transmission Date: 20111010
  Serious: Yes (Other)
  Sender: FDA-Public Use
  Company Number: CA-JNJFOC-20110509776

PATIENT
  Sex: Female
  Weight: 124 kg

DRUGS (1)
  1. REMICADE [Suspect]
     Indication: RHEUMATOID ARTHRITIS
     Route: 042
     Dates: start: 20040101

REACTIONS (4)
  - PYODERMA [None]
  - HAEMORRHAGE [None]
  - NASOPHARYNGITIS [None]
  - COUGH [None]
